FAERS Safety Report 7585143-6 (Version None)
Quarter: 2011Q3

REPORT INFORMATION
  Report Type: 
  Country: None (occurrence: None)
  Receive Date: 20110701
  Receipt Date: 20110622
  Transmission Date: 20111222
  Serious: Yes (Hospitalization)
  Sender: FDA-Public Use
  Company Number: US-BIOGENIDEC-2011BI023285

PATIENT
  Sex: Female

DRUGS (1)
  1. TYSABRI [Suspect]
     Indication: MULTIPLE SCLEROSIS
     Route: 042
     Dates: start: 20110613

REACTIONS (6)
  - ARTHRALGIA [None]
  - CYSTITIS [None]
  - FALL [None]
  - BACK PAIN [None]
  - BALANCE DISORDER [None]
  - FATIGUE [None]
